FAERS Safety Report 5420107-X (Version None)
Quarter: 2007Q3

REPORT INFORMATION
  Report Type: 
  Country: None (occurrence: None)
  Receive Date: 20070820
  Receipt Date: 20070807
  Transmission Date: 20080115
  Serious: Yes (Hospitalization)
  Sender: FDA-Public Use
  Company Number: US-SHR-US-2007-019051

PATIENT
  Age: 61 Year
  Sex: Female
  Weight: 53.1 kg

DRUGS (1)
  1. BETASERON [Suspect]
     Dosage: 8 MIU, EVERY 2D
     Route: 058
     Dates: start: 20030516

REACTIONS (2)
  - CORONARY ARTERY OCCLUSION [None]
  - INJECTION SITE REACTION [None]
